FAERS Safety Report 8065890-2 (Version None)
Quarter: 2012Q1

REPORT INFORMATION
  Report Type: 
  Country: None (occurrence: None)
  Receive Date: 20120124
  Receipt Date: 20120116
  Transmission Date: 20120608
  Serious: Yes (Hospitalization, Other)
  Sender: FDA-Public Use
  Company Number: US-BAYER-2012-000089

PATIENT
  Age: 27 Year
  Sex: Female
  Weight: 68 kg

DRUGS (9)
  1. VICODIN [Concomitant]
  2. CORTISONE ACETATE [Concomitant]
     Dosage: UNK
     Dates: start: 20090513
  3. BENADRYL [Concomitant]
  4. AMOXICILLIN [Concomitant]
     Dosage: UNK
     Dates: start: 20090401
  5. RELPAX [Concomitant]
  6. YAZ [Suspect]
     Indication: ACNE
  7. ZYRTEC [Concomitant]
  8. PREDNISONE TAB [Concomitant]
     Dosage: UNK
     Dates: start: 20090513
  9. YAZ [Suspect]
     Indication: CONTRACEPTION
     Dosage: UNK
     Dates: start: 20080301, end: 20090501

REACTIONS (13)
  - DYSCALCULIA [None]
  - CONVULSION [None]
  - THROMBOSIS [None]
  - CEREBROVASCULAR ACCIDENT [None]
  - FATIGUE [None]
  - DEPRESSION [None]
  - ANXIETY [None]
  - CEREBRAL VENOUS THROMBOSIS [None]
  - HEADACHE [None]
  - MEMORY IMPAIRMENT [None]
  - STRESS [None]
  - INSOMNIA [None]
  - HEMIPARESIS [None]
